FAERS Safety Report 16571293 (Version 3)
Quarter: 2019Q3

REPORT INFORMATION
  Report Type: Report from Study
  Country: None (occurrence: CH)
  Receive Date: 20190715
  Receipt Date: 20190801
  Transmission Date: 20191004
  Serious: Yes (Hospitalization, Other)
  Sender: FDA-Public Use
  Company Number: CH-ABBVIE-19K-151-2852145-00

PATIENT
  Age: 72 Year
  Sex: Male

DRUGS (3)
  1. DUODOPA [Suspect]
     Active Substance: CARBIDOPA\LEVODOPA
     Dosage: MD 7 ML, CONTINUOUS RATE DAY 5.1 ML/H, CONTINUOUS RATE NIGHT 4.4 ML/H, EXTRA DOSE 2 ML
     Route: 050
     Dates: start: 20180228, end: 20181226
  2. DUODOPA [Suspect]
     Active Substance: CARBIDOPA\LEVODOPA
     Dosage: MD 7 ML, CONTINUOUS RATE DAY 5.2 ML/H, CONTINUOUS RATE NIGHT 4.6 ML/H, EXTRA DOSE 3.5 ML
     Route: 050
     Dates: start: 20181226
  3. DUODOPA [Suspect]
     Active Substance: CARBIDOPA\LEVODOPA
     Indication: PARKINSON^S DISEASE
     Route: 050
     Dates: start: 20160215, end: 20180228

REACTIONS (5)
  - Dehydration [Recovering/Resolving]
  - Confusional state [Recovered/Resolved]
  - Inflammatory marker increased [Unknown]
  - Urinary retention [Recovering/Resolving]
  - Diarrhoea [Recovering/Resolving]

NARRATIVE: CASE EVENT DATE: 201907
